FAERS Safety Report 13057865 (Version 1)
Quarter: 2016Q4

REPORT INFORMATION
  Report Type: Spontaneous
  Country: US (occurrence: US)
  Receive Date: 20161223
  Receipt Date: 20161223
  Transmission Date: 20170207
  Serious: Yes (Hospitalization)
  Sender: FDA-Public Use
  Company Number: None

PATIENT
  Sex: Female
  Weight: 75 kg

DRUGS (1)
  1. MEMANTINE HYDROCHLORIDE. [Suspect]
     Active Substance: MEMANTINE HYDROCHLORIDE
     Dates: end: 20161216

REACTIONS (11)
  - Hyponatraemia [None]
  - Noninfective encephalitis [None]
  - Confusional state [None]
  - Nausea [None]
  - Aphasia [None]
  - Disorientation [None]
  - Vomiting [None]
  - Pneumonitis [None]
  - Brain oedema [None]
  - Hemiparesis [None]
  - Condition aggravated [None]

NARRATIVE: CASE EVENT DATE: 20161216
